FAERS Safety Report 4304072-4 (Version None)
Quarter: 2004Q1

REPORT INFORMATION
  Report Type: 
  Country: None (occurrence: None)
  Receive Date: 20040223
  Receipt Date: 20040105
  Transmission Date: 20041129
  Serious: No
  Sender: FDA-Public Use
  Company Number: PHEH2004US00527

PATIENT
  Sex: Female

DRUGS (1)
  1. ZELNORM [Suspect]
     Dosage: 6 MG, ORAL
     Route: 048
     Dates: start: 20031101

REACTIONS (3)
  - INCREASED APPETITE [None]
  - MENSTRUAL DISORDER [None]
  - MYALGIA [None]
